FAERS Safety Report 4526539-6 (Version None)
Quarter: 2004Q4

REPORT INFORMATION
  Report Type: 
  Country: None (occurrence: None)
  Receive Date: 20041210
  Receipt Date: 20041130
  Transmission Date: 20050328
  Serious: Yes (Hospitalization)
  Sender: FDA-Public Use
  Company Number: 2004UW24585

PATIENT
  Age: 51 Year
  Sex: Female

DRUGS (3)
  1. SEROQUEL [Suspect]
     Dosage: 200 MG HS PO
     Route: 048
  2. MORPHINE [Concomitant]
  3. PARNATE [Concomitant]

REACTIONS (5)
  - DEPRESSION [None]
  - NEUROLEPTIC MALIGNANT SYNDROME [None]
  - OVERDOSE [None]
  - RENAL FAILURE [None]
  - RESPIRATORY FAILURE [None]
